FAERS Safety Report 7333128-7 (Version None)
Quarter: 2011Q1

REPORT INFORMATION
  Report Type: 
  Country: None (occurrence: None)
  Receive Date: 20110222
  Receipt Date: 20110204
  Transmission Date: 20110831
  Serious: Yes (Other)
  Sender: FDA-Public Use
  Company Number: 2011SP005465

PATIENT

DRUGS (1)
  1. TEMODAL [Suspect]
     Indication: PRODUCT USED FOR UNKNOWN INDICATION

REACTIONS (5)
  - HERPES ZOSTER [None]
  - LEUKOPENIA [None]
  - GASTROINTESTINAL HAEMORRHAGE [None]
  - DIPLOPIA [None]
  - THROMBOCYTOPENIA [None]
